FAERS Safety Report 5027226-0 (Version None)
Quarter: 2006Q2

REPORT INFORMATION
  Report Type: 
  Country: None (occurrence: None)
  Receive Date: 20060615
  Receipt Date: 20030506
  Transmission Date: 20061013
  Serious: Yes (Death)
  Sender: FDA-Public Use
  Company Number: IE-BOEHRINGER INGELHEIM PHARMACEUTICALS, INC.-2003-UK-00271UK

PATIENT
  Age: 31 Year
  Sex: Female

DRUGS (3)
  1. NEVIRAPINE [Suspect]
     Indication: HIV INFECTION
     Dosage: 200 MG ONCE DAILY
  2. NEVIRAPINE [Suspect]
     Dosage: DOSE ESCALATED
  3. COMBIVIR [Concomitant]

REACTIONS (11)
  - CONVULSION [None]
  - DRUG EXPOSURE DURING PREGNANCY [None]
  - DRUG TOXICITY [None]
  - ENCEPHALOPATHY [None]
  - HEPATIC NECROSIS [None]
  - HEPATITIS [None]
  - HYPOTENSION [None]
  - NASAL CONGESTION [None]
  - NECROSIS [None]
  - RASH [None]
  - RENAL FAILURE [None]
